FAERS Safety Report 24232728 (Version 1)
Quarter: 2024Q3

REPORT INFORMATION
  Report Type: Report from Study
  Country: US (occurrence: US)
  Receive Date: 20240821
  Receipt Date: 20240821
  Transmission Date: 20241016
  Serious: Yes (Death, Other)
  Sender: GILEAD
  Company Number: US-GILEAD-2024-0684809

PATIENT
  Age: 72 Year
  Sex: Male

DRUGS (10)
  1. AMBRISENTAN [Suspect]
     Active Substance: AMBRISENTAN
     Indication: Pulmonary hypertension
     Dosage: 10 MG, QD
     Route: 065
     Dates: start: 20180323
  2. DIGOXIN [Concomitant]
     Active Substance: DIGOXIN
  3. FUROSEMIDE [Concomitant]
     Active Substance: FUROSEMIDE
  4. IRON [Concomitant]
     Active Substance: IRON
  5. METOLAZONE [Concomitant]
     Active Substance: METOLAZONE
  6. MORPHINE [Concomitant]
     Active Substance: MORPHINE
  7. MUPIRON [Concomitant]
  8. SILDENAFIL [Concomitant]
     Active Substance: SILDENAFIL
  9. SPIRONOLACTONE [Concomitant]
     Active Substance: SPIRONOLACTONE
  10. CYANOCOBALAMIN [Concomitant]
     Active Substance: CYANOCOBALAMIN

REACTIONS (1)
  - Death [Fatal]
